FAERS Safety Report 4539941-3 (Version None)
Quarter: 2004Q4

REPORT INFORMATION
  Report Type: 
  Country: None (occurrence: None)
  Receive Date: 20041223
  Receipt Date: 20041209
  Transmission Date: 20050328
  Serious: Yes (Hospitalization)
  Sender: FDA-Public Use
  Company Number: FABR-10913

PATIENT
  Age: 45 Year
  Sex: Male
  Weight: 68.2 kg

DRUGS (6)
  1. FABRAZYME [Suspect]
     Indication: FABRY'S DISEASE
     Dosage: 1 MG/KG Q2WKS IV
     Route: 042
     Dates: start: 20010521
  2. PRODAFALGAN [Concomitant]
  3. SOLU-CORTEF [Concomitant]
  4. ACENOCOUMAROL [Concomitant]
  5. ASA/PHENYTOIN [Concomitant]
  6. PIRACETAM [Concomitant]

REACTIONS (1)
  - RENAL TRANSPLANT [None]
